FAERS Safety Report 11026557 (Version 1)
Quarter: 2015Q2

REPORT INFORMATION
  Report Type: Spontaneous
  Country: US (occurrence: US)
  Receive Date: 20150414
  Receipt Date: 20150414
  Transmission Date: 20150821
  Serious: Yes (Other)
  Sender: FDA-Public Use
  Company Number: US-PFIZER INC-2015122496

PATIENT
  Sex: Male
  Weight: 84 kg

DRUGS (1)
  1. VIAGRA [Suspect]
     Active Substance: SILDENAFIL CITRATE
     Indication: GENITAL DISORDER MALE
     Dosage: AS NEEDED (TOOK TWICE, LOWEST DOSAGE)
     Route: 048
     Dates: start: 20150331, end: 20150403

REACTIONS (4)
  - Acquired phimosis [Recovered/Resolved]
  - Skin odour abnormal [Not Recovered/Not Resolved]
  - Product use issue [Unknown]
  - Hyperhidrosis [Not Recovered/Not Resolved]

NARRATIVE: CASE EVENT DATE: 20150331
